FAERS Safety Report 5027041-8 (Version None)
Quarter: 2006Q2

REPORT INFORMATION
  Report Type: 
  Country: None (occurrence: None)
  Receive Date: 20060609
  Receipt Date: 20060530
  Transmission Date: 20061013
  Serious: Yes (Hospitalization)
  Sender: FDA-Public Use
  Company Number: 200606918

PATIENT
  Age: 52 Year
  Sex: Male

DRUGS (4)
  1. ZOLOFT [Suspect]
     Indication: ILL-DEFINED DISORDER
     Dosage: 100 MG (50 MG, 1 D), ORAL
     Route: 048
     Dates: start: 20060424
  2. BUSPAR [Suspect]
     Indication: ILL-DEFINED DISORDER
     Dosage: 10 MG (1 D), ORAL
     Route: 048
     Dates: start: 20050101, end: 20060515
  3. LORAZEPAM [Concomitant]
  4. OXAZEPAM [Concomitant]

REACTIONS (4)
  - DRUG INTERACTION [None]
  - GASTROINTESTINAL MOTILITY DISORDER [None]
  - SEROTONIN SYNDROME [None]
  - VERTIGO [None]
